FAERS Safety Report 19974107 (Version 1)
Quarter: 2021Q4

REPORT INFORMATION
  Report Type: Spontaneous
  Country: US (occurrence: US)
  Receive Date: 20211020
  Receipt Date: 20211020
  Transmission Date: 20220303
  Serious: Yes (Death)
  Sender: FDA-Public Use
  Company Number: None

PATIENT
  Sex: Female

DRUGS (1)
  1. REPATHA [Suspect]
     Active Substance: EVOLOCUMAB
     Indication: Illness
     Dosage: ?          OTHER FREQUENCY:EVERY 4 WEEKS;
     Route: 058
     Dates: start: 20190709

REACTIONS (1)
  - Death [None]
